FAERS Safety Report 7184691-0 (Version None)
Quarter: 2010Q4

REPORT INFORMATION
  Report Type: 
  Country: None (occurrence: None)
  Receive Date: 20101222
  Receipt Date: 20101213
  Transmission Date: 20110411
  Serious: Yes (Death, Hospitalization)
  Sender: FDA-Public Use
  Company Number: US-ACTELION-A-US2010-42456

PATIENT

DRUGS (1)
  1. ILOPROST INHALATION SOLUTION UNKNOWN US [Suspect]
     Indication: PULMONARY ARTERIAL HYPERTENSION
     Dosage: UNK
     Route: 055
     Dates: start: 20101020

REACTIONS (5)
  - ASPIRATION PLEURAL CAVITY [None]
  - DEATH [None]
  - FLUID RETENTION [None]
  - OEDEMA PERIPHERAL [None]
  - PLEURAL EFFUSION [None]
